FAERS Safety Report 9439944 (Version 2)
Quarter: 2013Q3

REPORT INFORMATION
  Report Type: Spontaneous
  Country: BR (occurrence: BR)
  Receive Date: 20130805
  Receipt Date: 20130903
  Transmission Date: 20140515
  Serious: Yes (Other)
  Sender: FDA-Public Use
  Company Number: BR-NOVOPROD-384198

PATIENT
  Age: 52 Year
  Sex: Female
  Weight: 78 kg

DRUGS (8)
  1. NOVOLIN R [Suspect]
     Indication: TYPE 2 DIABETES MELLITUS
     Dosage: 6 IU, (LUNCHTIME)
     Route: 058
     Dates: start: 2005
  2. LANTUS [Suspect]
     Indication: TYPE 2 DIABETES MELLITUS
     Dosage: 34 IU, (MORNING)
     Route: 058
     Dates: start: 2008
  3. ATENOLOL [Concomitant]
     Indication: HYPERTENSION
     Dosage: 1 TAB, UNK
     Route: 048
  4. ENALAPRIL [Concomitant]
     Indication: HYPERTENSION
     Dosage: 2 TAB, UNK
     Route: 048
  5. SIMVASTATIN [Concomitant]
     Indication: HYPERCHOLESTEROLAEMIA
     Dosage: 1 TAB, UNK
     Route: 048
  6. CALCITRIOL [Concomitant]
     Indication: PROPHYLAXIS
     Dosage: 1 TAB, UNK
     Route: 048
  7. PURAN T4 [Concomitant]
     Indication: HYPOTHYROIDISM
     Dosage: 100 MCG, 1 TAB, UNK
     Route: 048
  8. AMLODIPINE [Concomitant]
     Indication: HYPERTENSION
     Dosage: 2 TAB, UNK
     Route: 048

REACTIONS (3)
  - Retinal detachment [Recovered/Resolved with Sequelae]
  - Incorrect dose administered [Unknown]
  - Hypoglycaemia [Unknown]
